FAERS Safety Report 7440242-4 (Version None)
Quarter: 2011Q2

REPORT INFORMATION
  Report Type: 
  Country: None (occurrence: None)
  Receive Date: 20110427
  Receipt Date: 20100525
  Transmission Date: 20111010
  Serious: Yes (Other)
  Sender: FDA-Public Use
  Company Number: US-PFIZER INC-2010050662

PATIENT
  Sex: Female
  Weight: 72.562 kg

DRUGS (2)
  1. ZITHROMAX [Suspect]
     Indication: INFECTION
     Dosage: 250 MG, DAILY
     Route: 048
     Dates: start: 20100412, end: 20100415
  2. ALBUTEROL [Concomitant]
     Dosage: UNK
     Route: 045

REACTIONS (1)
  - RASH [None]
